FAERS Safety Report 13573304 (Version 2)
Quarter: 2017Q3

REPORT INFORMATION
  Report Type: Spontaneous
  Country: FR (occurrence: FR)
  Receive Date: 20170523
  Receipt Date: 20170731
  Transmission Date: 20171127
  Serious: Yes (Other)
  Sender: FDA-Public Use
  Company Number: FR-PFIZER INC-2017220892

PATIENT
  Age: 87 Year
  Sex: Female
  Weight: 66 kg

DRUGS (1)
  1. CARBOPLATIN. [Suspect]
     Active Substance: CARBOPLATIN
     Dosage: UNK

REACTIONS (2)
  - Shock [Unknown]
  - Hypotension [Unknown]
